FAERS Safety Report 25156592 (Version 4)
Quarter: 2025Q2

REPORT INFORMATION
  Report Type: Spontaneous
  Country: GB (occurrence: GB)
  Receive Date: 20250403
  Receipt Date: 20250507
  Transmission Date: 20250717
  Serious: No
  Sender: PFIZER
  Company Number: GB-PFIZER INC-PV202500038652

PATIENT
  Age: 9 Year
  Sex: Male

DRUGS (1)
  1. GENOTROPIN [Suspect]
     Active Substance: SOMATROPIN
     Dosage: 0.5 MG, DAILY
     Route: 058

REACTIONS (4)
  - Drug dose omission by device [Recovered/Resolved]
  - Device defective [Unknown]
  - Device breakage [Unknown]
  - Expired device used [Recovered/Resolved]

NARRATIVE: CASE EVENT DATE: 20250327
